FAERS Safety Report 5864362-0 (Version None)
Quarter: 2008Q3

REPORT INFORMATION
  Report Type: 
  Country: None (occurrence: None)
  Receive Date: 20080829
  Receipt Date: 20080618
  Transmission Date: 20090109
  Serious: No
  Sender: FDA-Public Use
  Company Number: US-ABBOTT-08P-163-0458436-00

PATIENT
  Sex: Female

DRUGS (8)
  1. SIMCOR [Suspect]
     Indication: BLOOD CHOLESTEROL INCREASED
     Dosage: 500/20MG
     Route: 048
     Dates: start: 20080501
  2. SIMCOR [Suspect]
     Dosage: 500/20MG TABLETS
     Route: 048
     Dates: end: 20080613
  3. SIMCOR [Suspect]
     Dosage: 1000/20 MG
     Route: 048
     Dates: start: 20080616
  4. SIMCOR [Suspect]
     Dosage: 500/20MG
     Route: 048
     Dates: start: 20080501
  5. SIMCOR [Suspect]
     Dosage: 500/20MG
     Route: 048
     Dates: end: 20080616
  6. COUMDIN [Concomitant]
     Indication: DRUG USE FOR UNKNOWN INDICATION
     Route: 048
  7. VICODIN [Concomitant]
     Indication: PAIN
     Route: 048
  8. ALPRAZOLAM [Concomitant]
     Indication: SLEEP DISORDER
     Route: 048

REACTIONS (3)
  - DIARRHOEA [None]
  - FLUSHING [None]
  - NAUSEA [None]
